FAERS Safety Report 9991966 (Version 1)
Quarter: 2014Q1

REPORT INFORMATION
  Report Type: Spontaneous
  Country: US (occurrence: US)
  Receive Date: 20140310
  Receipt Date: 20140310
  Transmission Date: 20141002
  Serious: Yes (Hospitalization)
  Sender: FDA-Public Use
  Company Number: US-BAYER-2014-033341

PATIENT
  Age: 50 Year
  Sex: Female

DRUGS (29)
  1. YAZ [Suspect]
  2. YASMIN [Suspect]
     Indication: CONTRACEPTION
  3. GEMFIBROZIL [Concomitant]
     Dosage: 600 MG, UNK
     Dates: start: 20080526
  4. GEMFIBROZIL [Concomitant]
     Dosage: 600 MG, UNK
     Dates: start: 20080822
  5. VERAMYST [Concomitant]
     Dosage: 27.5 MG, UNK
     Dates: start: 20080610
  6. IPRATROPIUM BROMIDE [Concomitant]
     Dosage: 42 MCG
     Dates: start: 20080610
  7. OPTIVAR [Concomitant]
     Dosage: 0.05 %, UNK
     Dates: start: 20080704
  8. METRONIDAZOLE [Concomitant]
     Dosage: 500 MG, UNK
     Dates: start: 20080802
  9. METFORMIN [Concomitant]
     Dosage: 500 MG, QID
     Dates: start: 20080526
  10. METFORMIN [Concomitant]
     Dosage: 500 MG, QID
     Dates: start: 20080820
  11. LUNESTA [Concomitant]
     Dosage: 2 MG, QHS
     Dates: start: 20080612
  12. LUNESTA [Concomitant]
     Dosage: 2 MG, QHS
     Dates: start: 20080820
  13. LUNESTA [Concomitant]
     Dosage: 2 MG, QHS
     Dates: start: 20080822
  14. CLONAZEPAM [Concomitant]
     Dosage: 0.5 MG, UNK
     Dates: start: 20080605
  15. CLONAZEPAM [Concomitant]
     Dosage: 0.5 MG, UNK
     Dates: start: 20080618
  16. CLONAZEPAM [Concomitant]
     Dosage: 0.5 MG, UNK
     Dates: start: 20080702
  17. CLONAZEPAM [Concomitant]
     Dosage: 0.5 MG, UNK
     Dates: start: 20080704
  18. CLONAZEPAM [Concomitant]
     Dosage: 0.5 MG, UNK
     Dates: start: 20080713
  19. CLONAZEPAM [Concomitant]
     Dosage: 0.5 MG, UNK
     Dates: start: 20080808
  20. CLONAZEPAM [Concomitant]
     Dosage: 0.5 MG, UNK
     Dates: start: 20080811
  21. CLONAZEPAM [Concomitant]
     Dosage: 0.5 MG, UNK
     Dates: start: 20080820
  22. GLUCOSAMINE [Concomitant]
     Dosage: UNK
     Dates: start: 20080820
  23. CALCIUM [Concomitant]
     Dosage: UNK
     Dates: start: 20080820
  24. WELCHOL [Concomitant]
     Dosage: 625 MG, UNK
     Dates: start: 20080613
  25. WELCHOL [Concomitant]
     Dosage: 625 MG, UNK
     Dates: start: 20080618
  26. WELCHOL [Concomitant]
     Dosage: 625 MG, UNK
     Dates: start: 20080820
  27. RESTASIS [Concomitant]
     Dosage: UNK
     Dates: start: 20080820
  28. SPIRONOLACTONE [Concomitant]
     Dosage: 80 MG, TID
     Dates: start: 20080526
  29. SPIRONOLACTONE [Concomitant]
     Dosage: 80 MG, TID
     Dates: start: 20080824

REACTIONS (1)
  - Peripheral artery thrombosis [Recovering/Resolving]
